FAERS Safety Report 24693740 (Version 3)
Quarter: 2025Q1

REPORT INFORMATION
  Report Type: Report from Study
  Country: US (occurrence: US)
  Receive Date: 20241204
  Receipt Date: 20250108
  Transmission Date: 20250409
  Serious: Yes (Other)
  Sender: ALEXION PHARMACEUTICALS
  Company Number: US-AstraZeneca-CH-00759215A

PATIENT
  Age: 75 Year
  Weight: 69.841 kg

DRUGS (24)
  1. TEZEPELUMAB [Suspect]
     Active Substance: TEZEPELUMAB
     Indication: Asthma
     Dosage: 210 MILLIGRAM PER MILLILITRE, Q4W
  2. TEZEPELUMAB [Suspect]
     Active Substance: TEZEPELUMAB
  3. TEZEPELUMAB [Suspect]
     Active Substance: TEZEPELUMAB
  4. TEZEPELUMAB [Suspect]
     Active Substance: TEZEPELUMAB
  5. AIRSUPRA [Concomitant]
     Active Substance: ALBUTEROL SULFATE\BUDESONIDE
     Route: 065
  6. SYMBICORT [Concomitant]
     Active Substance: BUDESONIDE\FORMOTEROL FUMARATE DIHYDRATE
     Route: 065
  7. ALLEGRA ALLERGY [Concomitant]
     Active Substance: FEXOFENADINE HYDROCHLORIDE
     Dosage: 180 MILLIGRAM, EVERY MORNING
  8. ASPIRIN [Concomitant]
     Active Substance: ASPIRIN
     Dosage: 81 MILLIGRAM, QHS
  9. DUONEB [Concomitant]
     Active Substance: ALBUTEROL SULFATE\IPRATROPIUM BROMIDE
     Route: 065
  10. EPIPEN [Concomitant]
     Active Substance: EPINEPHRINE
     Indication: Hypersensitivity
  11. DALIRESP [Concomitant]
     Active Substance: ROFLUMILAST
     Dosage: 50 MICROGRAM, EVERY MORNING
  12. DOXYLAMINE SUCCINATE [Concomitant]
     Active Substance: DOXYLAMINE SUCCINATE
     Indication: Sleep disorder
     Dosage: 12.5 MILLIGRAM, QHS
  13. INCRUSE ELLIPTA [Concomitant]
     Active Substance: UMECLIDINIUM BROMIDE
     Dosage: 62.5 MICROGRAM, EVERY MORNING
  14. LIPITOR [Concomitant]
     Active Substance: ATORVASTATIN CALCIUM
     Dosage: 40 MILLIGRAM, QHS
  15. MUCINEX [Concomitant]
     Active Substance: GUAIFENESIN
     Dosage: 1 DOSAGE FORM, QHS
  16. VITAMINS [Concomitant]
     Active Substance: VITAMINS
     Dosage: 1 DOSAGE FORM, EVERY MORNING
  17. PULMICORT TURBUHALER [Concomitant]
     Active Substance: BUDESONIDE
     Route: 065
  18. PREDNISONE [Concomitant]
     Active Substance: PREDNISONE
     Dosage: 10 MILLIGRAM, EVERY MORNING
  19. PROVENTIL [Concomitant]
     Active Substance: ALBUTEROL
     Indication: Wheezing
     Route: 065
  20. PROVENTIL [Concomitant]
     Active Substance: ALBUTEROL
     Indication: Dyspnoea
  21. SINGULAIR [Concomitant]
     Active Substance: MONTELUKAST SODIUM
     Dosage: 10 MILLIGRAM, QHS
  22. THEOPHYLLINE [Concomitant]
     Active Substance: THEOPHYLLINE
     Dosage: 18.75 MILLILITER, BID
  23. VENTOLIN [Concomitant]
     Active Substance: ALBUTEROL SULFATE
     Indication: Wheezing
  24. VENTOLIN [Concomitant]
     Active Substance: ALBUTEROL SULFATE
     Indication: Dyspnoea

REACTIONS (2)
  - Cataract [Unknown]
  - Blood immunoglobulin E increased [Unknown]
